FAERS Safety Report 7814059 (Version 3)
Quarter: 2013Q2

REPORT INFORMATION
  Report Type: Spontaneous
  Country: US (occurrence: US)
  Receive Date: 20110216
  Receipt Date: 20130418
  Transmission Date: 20140414
  Serious: Yes (Hospitalization)
  Sender: FDA-Public Use
  Company Number: US-BAYER-2011-013950

PATIENT
  Age: 46 Year
  Sex: Female
  Weight: 84.35 kg

DRUGS (25)
  1. YASMIN [Suspect]
     Indication: CONTRACEPTION
     Dosage: UNK
     Dates: start: 200609, end: 200612
  2. YASMIN [Suspect]
     Indication: PREMENSTRUAL SYNDROME
     Dosage: UNK
     Dates: start: 20060927, end: 20061110
  3. YASMIN [Suspect]
     Indication: MENOPAUSAL SYMPTOMS
  4. YASMIN [Suspect]
     Indication: DYSMENORRHOEA
  5. PROPRANOLOL [Concomitant]
     Indication: MIGRAINE
     Dosage: UNK
     Dates: start: 200605
  6. MAXALT [Concomitant]
     Indication: MIGRAINE
     Dosage: UNK
     Dates: start: 200605
  7. LORAZEPAM [Concomitant]
     Indication: CONVULSION
     Dosage: UNK
     Dates: start: 20060607
  8. LORAZEPAM [Concomitant]
     Indication: CONVULSION
     Dosage: UNK
     Dates: start: 200611, end: 201107
  9. GABAPENTIN [Concomitant]
     Indication: CONVULSION
     Dosage: UNK
     Dates: start: 20060607
  10. TOPIRAMATE [Concomitant]
     Indication: CONVULSION
     Dosage: UNK
     Dates: start: 20060607
  11. LAMOTRIGINE [Concomitant]
     Indication: CONVULSION
     Dosage: UNK
     Dates: start: 20060607
  12. METOCLOPRAMIDE [Concomitant]
     Indication: NAUSEA
     Dosage: UNK
     Dates: start: 200607, end: 200610
  13. KEFLEX [Concomitant]
     Dosage: UNK
     Dates: start: 20061109, end: 20061116
  14. AUGMENTIN [Concomitant]
     Dosage: UNK
     Dates: start: 20061106, end: 20061116
  15. IBUPROFEN [Concomitant]
     Indication: PAIN
     Dosage: UNK
     Dates: start: 200611, end: 200702
  16. ACETAMINOPHEN W/CODEINE [Concomitant]
     Indication: PAIN
     Dosage: UNK
     Dates: start: 200611, end: 200705
  17. PRO-AIR [Concomitant]
     Indication: BRONCHOSPASM
     Dosage: UNK
     Dates: start: 200611, end: 201107
  18. FLUTICASONE [Concomitant]
     Dosage: UNK
     Dates: start: 200611, end: 200702
  19. PROMETHAZINE [Concomitant]
     Indication: NAUSEA
     Dosage: UNK
     Dates: start: 200611, end: 200702
  20. ROCEPHIN [Concomitant]
     Indication: CELLULITIS
     Dosage: UNK
     Dates: start: 20061106, end: 20061108
  21. ROCEPHIN [Concomitant]
     Indication: THROMBOPHLEBITIS SUPERFICIAL
  22. NOR-QD [Concomitant]
     Dosage: UNK
     Dates: start: 200607, end: 200610
  23. NOR-QD [Concomitant]
     Dosage: UNK
     Dates: start: 200611
  24. MOTRIN [Concomitant]
     Indication: ABDOMINAL PAIN LOWER
     Dosage: 600 MG, Q 6 HOURS
  25. ALBUTEROL [Concomitant]

REACTIONS (8)
  - Pulmonary embolism [None]
  - Injury [None]
  - Pain [None]
  - Emotional distress [None]
  - Anxiety [None]
  - Chest pain [None]
  - Dyspnoea exertional [None]
  - Thrombophlebitis superficial [None]
